FAERS Safety Report 6787433-3 (Version None)
Quarter: 2010Q2

REPORT INFORMATION
  Report Type: 
  Country: None (occurrence: None)
  Receive Date: 20100623
  Receipt Date: 20070604
  Transmission Date: 20101027
  Serious: Yes (Other)
  Sender: FDA-Public Use
  Company Number: US-PFIZER INC-2007026714

PATIENT
  Sex: Female
  Weight: 56 kg

DRUGS (4)
  1. DEPO-PROVERA SUSPENSION/INJ [Suspect]
     Indication: CONTRACEPTION
     Dosage: 1ST INJECTION
     Route: 030
     Dates: start: 20051201, end: 20051201
  2. DEPO-PROVERA SUSPENSION/INJ [Suspect]
     Route: 030
     Dates: start: 20061106, end: 20061106
  3. DEPO-PROVERA SUSPENSION/INJ [Suspect]
     Route: 030
     Dates: start: 20070125, end: 20070125
  4. DEPO-PROVERA SUSPENSION/INJ [Suspect]
     Dosage: MOST RECENT INJECTION
     Route: 030
     Dates: start: 20070420, end: 20070420

REACTIONS (4)
  - CHLAMYDIAL INFECTION [None]
  - DRUG INEFFECTIVE [None]
  - GONORRHOEA [None]
  - UNINTENDED PREGNANCY [None]
